FAERS Safety Report 10615912 (Version 1)
Quarter: 2014Q4

REPORT INFORMATION
  Report Type: Report from Study
  Country: AR (occurrence: AR)
  Receive Date: 20141201
  Receipt Date: 20141201
  Transmission Date: 20150529
  Serious: Yes (Other)
  Sender: FDA-Public Use
  Company Number: PHHY2014AR156820

PATIENT
  Sex: Male

DRUGS (1)
  1. DIOVAN [Suspect]
     Active Substance: VALSARTAN
     Indication: HYPERTENSION
     Dosage: 0.5 DF (160MG), BID OR 2 DF (80MG) QD
     Route: 065

REACTIONS (2)
  - Diabetes mellitus [Recovering/Resolving]
  - Wrong technique in drug usage process [Recovering/Resolving]
